FAERS Safety Report 4555993-9 (Version None)
Quarter: 2005Q1

REPORT INFORMATION
  Report Type: 
  Country: None (occurrence: None)
  Receive Date: 20050110
  Receipt Date: 20040616
  Transmission Date: 20050727
  Serious: Yes (Hospitalization)
  Sender: FDA-Public Use
  Company Number: US002667

PATIENT
  Age: 78 Year
  Sex: Male

DRUGS (2)
  1. ANAKINRA [Suspect]
     Indication: RHEUMATOID ARTHRITIS
     Dosage: DAILY, SC
     Route: 058
     Dates: start: 20000225, end: 20001213
  2. METHOTREXATE [Concomitant]

REACTIONS (1)
  - PNEUMONIA [None]
